FAERS Safety Report 6576007-5 (Version None)
Quarter: 2010Q1

REPORT INFORMATION
  Report Type: 
  Country: None (occurrence: None)
  Receive Date: 20100209
  Receipt Date: 20100127
  Transmission Date: 20100710
  Serious: Yes (Other)
  Sender: FDA-Public Use
  Company Number: PHHY2010US06649

PATIENT
  Sex: Female

DRUGS (12)
  1. MIACALCIN [Suspect]
     Dosage: UNK
     Route: 045
     Dates: end: 20100113
  2. FOLIC ACID W/VITAMIN B NOS [Concomitant]
  3. OMEPRAZOLE [Concomitant]
  4. CALCIUM W/MAGNESIUM/VITAMIN D [Concomitant]
  5. POTASSIUM [Concomitant]
  6. LYRICA [Concomitant]
  7. OXYCODONE HCL [Concomitant]
  8. AGILAN [Concomitant]
  9. TIZANIDINE HCL [Concomitant]
  10. ADVAIR DISKUS 100/50 [Concomitant]
  11. PROVENTIL [Concomitant]
  12. ALOE VERA [Concomitant]

REACTIONS (18)
  - BACK PAIN [None]
  - BRONCHITIS [None]
  - BURNING SENSATION [None]
  - CONSTIPATION [None]
  - DIARRHOEA [None]
  - DRY MOUTH [None]
  - GASTRITIS [None]
  - HYPERHIDROSIS [None]
  - INCREASED APPETITE [None]
  - MIGRAINE [None]
  - MUSCULOSKELETAL STIFFNESS [None]
  - NASAL DISCOMFORT [None]
  - OEDEMA [None]
  - OEDEMA PERIPHERAL [None]
  - PNEUMONIA [None]
  - SKIN DISORDER [None]
  - VARICOSE VEIN [None]
  - VISUAL IMPAIRMENT [None]
